FAERS Safety Report 12923943 (Version 1)
Quarter: 2016Q4

REPORT INFORMATION
  Report Type: Spontaneous
  Country: US (occurrence: US)
  Receive Date: 20161109
  Receipt Date: 20161109
  Transmission Date: 20170207
  Serious: Yes (Other)
  Sender: FDA-Public Use
  Company Number: None

PATIENT
  Age: 52 Year
  Sex: Male
  Weight: 195.05 kg

DRUGS (10)
  1. FENTANYL TRANSDERMAL SYSTEM [Suspect]
     Active Substance: FENTANYL
     Indication: PAIN
     Dosage: 50 MCG/HR 1 PATCH Q 72 HRS PLACED ON SKIN
     Route: 062
     Dates: start: 20160704
  2. OXYCODONE [Concomitant]
     Active Substance: OXYCODONE
  3. ASA 81 [Concomitant]
     Active Substance: ASPIRIN
  4. COQ10 [Concomitant]
     Active Substance: UBIDECARENONE
  5. DICLOFENAC-MISOPROST, LISIN/HCTZ [Concomitant]
  6. CINNAMON. [Concomitant]
     Active Substance: CINNAMON
  7. C-PAP MACHINE [Concomitant]
     Active Substance: DEVICE
  8. MV [Concomitant]
  9. OMEGA OIL [Concomitant]
  10. GARLIC. [Concomitant]
     Active Substance: GARLIC

REACTIONS (4)
  - Nausea [None]
  - Diarrhoea [None]
  - Malaise [None]
  - Withdrawal syndrome [None]

NARRATIVE: CASE EVENT DATE: 20161019
